FAERS Safety Report 5366644-8 (Version None)
Quarter: 2007Q2

REPORT INFORMATION
  Report Type: 
  Country: None (occurrence: None)
  Receive Date: 20070619
  Receipt Date: 20070604
  Transmission Date: 20071010
  Serious: Yes (Hospitalization)
  Sender: FDA-Public Use
  Company Number: T200700644

PATIENT
  Age: 49 Year
  Sex: Male

DRUGS (8)
  1. METHADONE HCL [Suspect]
     Indication: PAIN
     Dosage: SEE IMAGE
     Route: 048
     Dates: start: 20070301
  2. METHADONE HCL [Suspect]
     Indication: PAIN
     Dosage: SEE IMAGE
     Route: 048
     Dates: start: 20070527
  3. ENULOSE [Concomitant]
  4. FOSAMAX [Concomitant]
  5. ZOCOR [Concomitant]
  6. BACLOFEN [Concomitant]
  7. LOPID [Concomitant]
  8. LYRICA [Concomitant]

REACTIONS (3)
  - OVERDOSE [None]
  - PAIN [None]
  - UNRESPONSIVE TO STIMULI [None]
